FAERS Safety Report 12251133 (Version 1)
Quarter: 2016Q2

REPORT INFORMATION
  Report Type: Spontaneous
  Country: US (occurrence: US)
  Receive Date: 20160410
  Receipt Date: 20160410
  Transmission Date: 20160815
  Serious: No
  Sender: FDA-Public Use
  Company Number: US-JNJFOC-20160324317

PATIENT
  Sex: Female
  Weight: 65.77 kg

DRUGS (3)
  1. ZYRTEC [Suspect]
     Active Substance: CETIRIZINE HYDROCHLORIDE
     Indication: RHINORRHOEA
     Dosage: 1 TABLET
     Route: 048
     Dates: start: 20160319, end: 20160324
  2. THYROID PREPARATIONS [Concomitant]
     Active Substance: UNSPECIFIED INGREDIENT
     Indication: THYROID DISORDER
     Route: 065
  3. ZYRTEC [Suspect]
     Active Substance: CETIRIZINE HYDROCHLORIDE
     Indication: COUGH
     Dosage: 1 TABLET
     Route: 048
     Dates: start: 20160319, end: 20160324

REACTIONS (6)
  - Product label issue [Unknown]
  - Pain in extremity [Recovered/Resolved]
  - Dysstasia [Recovered/Resolved]
  - Arthralgia [Recovered/Resolved]
  - Off label use [Recovered/Resolved]
  - Product use issue [Recovered/Resolved]

NARRATIVE: CASE EVENT DATE: 20160319
